FAERS Safety Report 6416105-X (Version None)
Quarter: 2009Q4

REPORT INFORMATION
  Report Type: 
  Country: None (occurrence: None)
  Receive Date: 20091027
  Receipt Date: 20091020
  Transmission Date: 20100525
  Serious: Yes (Hospitalization, Disabling)
  Sender: FDA-Public Use
  Company Number: US-MERCK-0910USA02733

PATIENT
  Sex: Male

DRUGS (1)
  1. JANUVIA [Suspect]
     Indication: BLOOD GLUCOSE
     Route: 048
     Dates: start: 20090401

REACTIONS (1)
  - RHABDOMYOLYSIS [None]
